FAERS Safety Report 5242075-6 (Version None)
Quarter: 2007Q1

REPORT INFORMATION
  Report Type: 
  Country: None (occurrence: None)
  Receive Date: 20070220
  Receipt Date: 20070216
  Transmission Date: 20070707
  Serious: Yes (Other)
  Sender: FDA-Public Use
  Company Number: US-MERCK-0602USA01525

PATIENT
  Age: 61 Year
  Sex: Male
  Weight: 61 kg

DRUGS (3)
  1. FOSAMAX [Suspect]
     Indication: OSTEOPOROSIS
     Route: 048
     Dates: start: 19990101, end: 20060206
  2. FOSAMAX [Suspect]
     Indication: ARTHRITIS
     Route: 048
     Dates: start: 19990101, end: 20060206
  3. [THERAPY UNSPECIFIED] [Concomitant]
     Route: 065

REACTIONS (6)
  - INAPPROPRIATE SCHEDULE OF DRUG ADMINISTRATION [None]
  - LOOSE TOOTH [None]
  - OSTEONECROSIS [None]
  - OVERDOSE [None]
  - TOOTH DISORDER [None]
  - VOLVULUS [None]
